FAERS Safety Report 6696668-X (Version None)
Quarter: 2010Q2

REPORT INFORMATION
  Report Type: 
  Country: None (occurrence: None)
  Receive Date: 20100426
  Receipt Date: 20100420
  Transmission Date: 20101027
  Serious: Yes (Hospitalization)
  Sender: FDA-Public Use
  Company Number: US-GILEAD-2010-0028646

PATIENT
  Sex: Female
  Weight: 74.91 kg

DRUGS (20)
  1. LETAIRIS [Suspect]
     Indication: PULMONARY ARTERIAL HYPERTENSION
     Route: 048
     Dates: start: 20091127
  2. REVATIO [Concomitant]
  3. OXYGEN [Concomitant]
  4. FUROSEMIDE [Concomitant]
  5. NORVASC [Concomitant]
  6. NIFEDIPINE [Concomitant]
  7. NIFEDIPINE [Concomitant]
  8. NITROGLYCERIN [Concomitant]
  9. HYDROCODONE BITARTRATE AND ACETAMINOPHEN [Concomitant]
  10. TRAMADOL HCL [Concomitant]
  11. ALPRAZOLAM [Concomitant]
  12. AVELOX [Concomitant]
  13. LEVAQUIN [Concomitant]
  14. ALBUTEROL [Concomitant]
  15. CELEXA [Concomitant]
  16. CELLCEPT [Concomitant]
  17. LYRICA [Concomitant]
  18. METHADONE HCL [Concomitant]
  19. PREDNISONE [Concomitant]
  20. VITAMIN D [Concomitant]

REACTIONS (2)
  - CHEST PAIN [None]
  - OEDEMA PERIPHERAL [None]
